FAERS Safety Report 16875152 (Version 1)
Quarter: 2019Q4

REPORT INFORMATION
  Report Type: Spontaneous
  Country: US (occurrence: US)
  Receive Date: 20191001
  Receipt Date: 20191001
  Transmission Date: 20200122
  Serious: No
  Sender: FDA-Public Use
  Company Number: US-SEATTLE GENETICS-2019SGN00897

PATIENT
  Sex: Female

DRUGS (1)
  1. ADCETRIS [Suspect]
     Active Substance: BRENTUXIMAB VEDOTIN
     Indication: PRODUCT USED FOR UNKNOWN INDICATION

REACTIONS (7)
  - Bone pain [Unknown]
  - Dyspnoea [Unknown]
  - Dizziness [Unknown]
  - Eructation [Unknown]
  - Memory impairment [Unknown]
  - Haematocrit decreased [Unknown]
  - Haemoglobin decreased [Unknown]
